FAERS Safety Report 17859796 (Version 2)
Quarter: 2020Q3

REPORT INFORMATION
  Report Type: Spontaneous
  Country: US (occurrence: US)
  Receive Date: 20200604
  Receipt Date: 20200710
  Transmission Date: 20201103
  Serious: No
  Sender: FDA-Public Use
  Company Number: US-PFIZER INC-2020218076

PATIENT
  Age: 73 Year
  Sex: Male

DRUGS (2)
  1. ASPIRIN [ACETYLSALICYLIC ACID] [Concomitant]
     Active Substance: ASPIRIN
     Dosage: UNK
  2. LIPITOR [Suspect]
     Active Substance: ATORVASTATIN CALCIUM
     Indication: CORONARY ARTERIAL STENT INSERTION
     Dosage: 10 MG (CUTTING 20 MG IN HALF TO GET HIS 10 MG DOSE )

REACTIONS (2)
  - Scan myocardial perfusion abnormal [Unknown]
  - Product dose omission issue [Unknown]

NARRATIVE: CASE EVENT DATE: 2014
